FAERS Safety Report 5062986-4 (Version None)
Quarter: 2006Q3

REPORT INFORMATION
  Report Type: 
  Country: None (occurrence: None)
  Receive Date: 20060724
  Receipt Date: 20060707
  Transmission Date: 20061208
  Serious: Yes (Other)
  Sender: FDA-Public Use
  Company Number: 2006085731

PATIENT
  Age: 79 Year
  Sex: Female

DRUGS (1)
  1. PEGAPTANIB SODIUM (PEGAPTANIB SODIUM) [Suspect]
     Indication: CHOROIDAL NEOVASCULARISATION
     Dosage: INTRAVITREOUS

REACTIONS (2)
  - DETACHMENT OF RETINAL PIGMENT EPITHELIUM [None]
  - VISUAL ACUITY REDUCED [None]
